FAERS Safety Report 4727160-7 (Version None)
Quarter: 2005Q3

REPORT INFORMATION
  Report Type: 
  Country: None (occurrence: None)
  Receive Date: 20050726
  Receipt Date: 20050714
  Transmission Date: 20060218
  Serious: Yes (Hospitalization)
  Sender: FDA-Public Use
  Company Number: 216118

PATIENT
  Age: 6 Year
  Sex: Male

DRUGS (2)
  1. AVASTIN [Suspect]
     Indication: GLIOMA
     Dates: start: 20050601
  2. CPT-11 (IRINOTECAN HYDROCHLORIDE) [Concomitant]

REACTIONS (1)
  - DECUBITUS ULCER [None]
